FAERS Safety Report 6918496-X (Version None)
Quarter: 2010Q3

REPORT INFORMATION
  Report Type: 
  Country: None (occurrence: None)
  Receive Date: 20100811
  Receipt Date: 20100806
  Transmission Date: 20110219
  Serious: Yes (Hospitalization)
  Sender: FDA-Public Use
  Company Number: FR-WYE-G06511910

PATIENT
  Sex: Male
  Weight: 13 kg

DRUGS (1)
  1. CHILDREN'S ADVIL [Suspect]
     Indication: PHARYNGEAL ERYTHEMA
     Dosage: UNKNOWN
     Route: 048
     Dates: start: 20100626, end: 20100627

REACTIONS (5)
  - CELLULITIS [None]
  - CONDITION AGGRAVATED [None]
  - FEBRILE CONVULSION [None]
  - LYMPHADENOPATHY [None]
  - PHARYNGITIS [None]
